FAERS Safety Report 9143045 (Version 4)
Quarter: 2013Q2

REPORT INFORMATION
  Report Type: Report from Study
  Country: US (occurrence: US)
  Receive Date: 20130306
  Receipt Date: 20130410
  Transmission Date: 20140414
  Serious: No
  Sender: FDA-Public Use
  Company Number: US-PFIZER INC-2013074252

PATIENT
  Age: 74 Year
  Sex: Female
  Weight: 53.5 kg

DRUGS (8)
  1. SUTENT [Suspect]
     Indication: RENAL CELL CARCINOMA
     Dosage: 50 MG, 1X/DAY
     Route: 048
     Dates: start: 20130218, end: 20130227
  2. LOVASTATIN [Concomitant]
     Dosage: UNK
  3. LISINOPRIL [Concomitant]
     Dosage: UNK
  4. AMLODIPINE [Concomitant]
     Dosage: UNK
  5. OMEPRAZOLE [Concomitant]
     Dosage: UNK
  6. ATENOLOL [Concomitant]
     Dosage: UNK
  7. NEURONTIN [Concomitant]
     Dosage: UNK
  8. ASPIRIN [Concomitant]
     Dosage: UNK

REACTIONS (7)
  - Pain [Unknown]
  - Headache [Unknown]
  - Oral pain [Not Recovered/Not Resolved]
  - Eye swelling [Unknown]
  - Diarrhoea [Recovering/Resolving]
  - Fatigue [Recovering/Resolving]
  - Swelling face [Unknown]
